FAERS Safety Report 6841350-9 (Version None)
Quarter: 2010Q3

REPORT INFORMATION
  Report Type: 
  Country: None (occurrence: None)
  Receive Date: 20100714
  Receipt Date: 20071211
  Transmission Date: 20110219
  Serious: No
  Sender: FDA-Public Use
  Company Number: US-PFIZER INC-2007053870

PATIENT
  Sex: Female
  Weight: 52.3 kg

DRUGS (6)
  1. CHANTIX [Suspect]
     Indication: SMOKING CESSATION THERAPY
     Dates: start: 20070601
  2. CLONAZEPAM [Concomitant]
  3. MONTELUKAST SODIUM [Concomitant]
  4. TIOTROPIUM BROMIDE [Concomitant]
     Route: 055
  5. PARA-SELTZER [Concomitant]
  6. WELLBUTRIN [Concomitant]

REACTIONS (7)
  - ANXIETY [None]
  - CIRCUMSTANCE OR INFORMATION CAPABLE OF LEADING TO MEDICATION ERROR [None]
  - DRUG EFFECT DECREASED [None]
  - DYSPEPSIA [None]
  - HEADACHE [None]
  - INSOMNIA [None]
  - PSYCHOMOTOR HYPERACTIVITY [None]
